FAERS Safety Report 9682006 (Version 1)
Quarter: 2013Q4

REPORT INFORMATION
  Report Type: Report from Study
  Country: US (occurrence: US)
  Receive Date: 20131111
  Receipt Date: 20131111
  Transmission Date: 20140711
  Serious: Yes (Hospitalization)
  Sender: FDA-Public Use
  Company Number: US-ACTELION-A-US2013-90739

PATIENT
  Age: 62 Year
  Sex: Male

DRUGS (13)
  1. TRACLEER [Suspect]
     Indication: PULMONARY ARTERIAL HYPERTENSION
     Dosage: 125 MG BID
     Route: 048
     Dates: start: 200506
  2. TRACLEER [Suspect]
     Dosage: 62.5 MG BID
     Route: 048
     Dates: start: 200502, end: 200506
  3. PRILOSEC [Concomitant]
     Dosage: 20 MG, UNK
  4. ZOCOR [Concomitant]
     Dosage: 20 MG, QD
  5. DERMIDEX [Concomitant]
     Dosage: 20 MG, QD
  6. COUMADIN [Concomitant]
     Dosage: 5 MG 4XW
  7. COUMADIN [Concomitant]
     Dosage: 7.5 MG 3XW
  8. LOPRESSOR [Concomitant]
     Dosage: ^12.4 MG BID^
  9. NORVASC [Concomitant]
     Dosage: 2.5 MG, QD
  10. REVATIO [Concomitant]
     Dosage: 20 MG, UNK
  11. DHEA [Concomitant]
     Dosage: 25 MG, BID
  12. MSM [Concomitant]
     Dosage: 1000 MG, UNK
  13. ACETYLSALICYLIC ACID [Concomitant]
     Dosage: 81 MG, QD

REACTIONS (4)
  - Atrial fibrillation [Recovered/Resolved]
  - Blood pressure decreased [Recovered/Resolved]
  - Presyncope [Recovered/Resolved]
  - Epistaxis [Recovered/Resolved]
